FAERS Safety Report 10909239 (Version 1)
Quarter: 2015Q1

REPORT INFORMATION
  Report Type: Spontaneous
  Country: US (occurrence: US)
  Receive Date: 20150312
  Receipt Date: 20150312
  Transmission Date: 20150721
  Serious: Yes (Hospitalization, Other)
  Sender: FDA-Public Use
  Company Number: US-ELI_LILLY_AND_COMPANY-US201503001314

PATIENT
  Sex: Female

DRUGS (4)
  1. NORVASK                            /00972401/ [Concomitant]
  2. HUMALOG [Suspect]
     Active Substance: INSULIN LISPRO
     Indication: TYPE 1 DIABETES MELLITUS
     Dosage: UNK, PRN
     Route: 058
     Dates: start: 2001
  3. HUMULIN N [Suspect]
     Active Substance: INSULIN HUMAN
     Indication: TYPE 1 DIABETES MELLITUS
     Dosage: UNK
     Route: 065
     Dates: start: 1979, end: 2001
  4. PHENOBARBITAL. [Concomitant]
     Active Substance: PHENOBARBITAL

REACTIONS (14)
  - Skin cancer [Unknown]
  - Seizure [Unknown]
  - Hepatic cirrhosis [Unknown]
  - Blood glucose decreased [Unknown]
  - Autoimmune hepatitis [Unknown]
  - Skin lesion [Unknown]
  - Skin cancer [Unknown]
  - Hypertension [Unknown]
  - Septic shock [Unknown]
  - Incorrect product storage [Unknown]
  - Acute kidney injury [Unknown]
  - Colitis ischaemic [Unknown]
  - Blood glucose increased [Unknown]
  - Glycosylated haemoglobin increased [Unknown]

NARRATIVE: CASE EVENT DATE: 2003
